FAERS Safety Report 13944787 (Version 1)
Quarter: 2017Q3

REPORT INFORMATION
  Report Type: Spontaneous
  Country: US (occurrence: US)
  Receive Date: 20170907
  Receipt Date: 20170907
  Transmission Date: 20171128
  Serious: No
  Sender: FDA-Public Use
  Company Number: US-ROCHE-1447061

PATIENT
  Age: 41 Year
  Sex: Female
  Weight: 59.02 kg

DRUGS (3)
  1. RITUXAN [Suspect]
     Active Substance: RITUXIMAB
     Indication: MULTIPLE SCLEROSIS
     Dosage: INFUSION
     Route: 042
     Dates: start: 20131022, end: 20131022
  2. RITUXAN [Suspect]
     Active Substance: RITUXIMAB
     Dosage: INFUSION
     Route: 042
     Dates: start: 20131115, end: 20131115
  3. RITUXAN [Suspect]
     Active Substance: RITUXIMAB
     Dosage: INFUSION
     Route: 042
     Dates: start: 201311, end: 201312

REACTIONS (3)
  - Nausea [Recovered/Resolved]
  - Vomiting [Unknown]
  - Tooth loss [Unknown]

NARRATIVE: CASE EVENT DATE: 201311
